FAERS Safety Report 7039374-4 (Version None)
Quarter: 2010Q4

REPORT INFORMATION
  Report Type: 
  Country: None (occurrence: None)
  Receive Date: 20101012
  Receipt Date: 20101010
  Transmission Date: 20110411
  Serious: Yes (Other)
  Sender: FDA-Public Use
  Company Number: CH-BRISTOL-MYERS SQUIBB COMPANY-15256308

PATIENT
  Age: 61 Year
  Sex: Female

DRUGS (7)
  1. ORENCIA [Suspect]
     Indication: RHEUMATOID ARTHRITIS
     Route: 042
     Dates: start: 20080326
  2. METHOTREXATE [Suspect]
     Indication: RHEUMATOID ARTHRITIS
     Route: 058
     Dates: start: 20030101
  3. SPIRICORT [Concomitant]
     Route: 048
  4. VOLTAREN [Concomitant]
  5. PANTOPRAZOLE SODIUM [Concomitant]
  6. ZESTRIL [Concomitant]
     Dosage: 1/4 DOSE
  7. TRAMADOL HCL [Concomitant]
     Dosage: TRAMAL RETARD

REACTIONS (2)
  - LEUKOPENIA [None]
  - PSEUDOMONAS INFECTION [None]
